FAERS Safety Report 5710761-7 (Version None)
Quarter: 2008Q2

REPORT INFORMATION
  Report Type: 
  Country: None (occurrence: None)
  Receive Date: 20080421
  Receipt Date: 20080327
  Transmission Date: 20081010
  Serious: No
  Sender: FDA-Public Use
  Company Number: US-BAYER-200818359NA

PATIENT
  Age: 38 Year
  Sex: Female

DRUGS (2)
  1. ULTRAVIST 300 [Suspect]
     Indication: SCAN BRAIN
     Dosage: TOTAL DAILY DOSE: 50 ML  UNIT DOSE: 50 ML
     Route: 042
     Dates: start: 20080327, end: 20080327
  2. PREDNISONE [Concomitant]
     Indication: PREMEDICATION

REACTIONS (4)
  - CHEST DISCOMFORT [None]
  - DYSPNOEA [None]
  - NAUSEA [None]
  - SNEEZING [None]
